FAERS Safety Report 4501501-8 (Version None)
Quarter: 2004Q4

REPORT INFORMATION
  Report Type: 
  Country: None (occurrence: None)
  Receive Date: 20040928
  Receipt Date: 20040812
  Transmission Date: 20050328
  Serious: No
  Sender: FDA-Public Use
  Company Number: 04P-163-0270827-00

PATIENT
  Age: 84 Year
  Sex: Female
  Weight: 78.4723 kg

DRUGS (4)
  1. HUMIRA [Suspect]
     Indication: ARTHRALGIA
     Dosage: 40 MG, 1 IN 2 WK, SUBCUTANEOUS
     Route: 058
     Dates: start: 20040401, end: 20040601
  2. CELECOXIB [Concomitant]
  3. TRAMADOL [Concomitant]
  4. METHOTREXATE SODIUM [Concomitant]

REACTIONS (4)
  - ARTHRALGIA [None]
  - DIZZINESS [None]
  - RENAL DISORDER [None]
  - STOMACH DISCOMFORT [None]
